FAERS Safety Report 4426566-3 (Version None)
Quarter: 2004Q3

REPORT INFORMATION
  Report Type: 
  Country: None (occurrence: None)
  Receive Date: 20040816
  Receipt Date: 20020809
  Transmission Date: 20050211
  Serious: Yes (Hospitalization)
  Sender: FDA-Public Use
  Company Number: PHHO2002PL06040

PATIENT
  Age: 67 Year
  Sex: Female
  Weight: 62 kg

DRUGS (4)
  1. TEGASEROD VS PLACEBO [Suspect]
     Indication: CONSTIPATION
     Dosage: 2 MG, BID
     Route: 048
     Dates: start: 20020509
  2. MONONIT [Concomitant]
     Indication: CORONARY ARTERY DISEASE
  3. MOLSIDOMINE [Concomitant]
     Indication: CORONARY ARTERY DISEASE
  4. LOKREN [Concomitant]
     Indication: HYPERTENSION

REACTIONS (4)
  - ANAEMIA [None]
  - COLONIC POLYP [None]
  - LOWER GASTROINTESTINAL HAEMORRHAGE [None]
  - POLYPECTOMY [None]
